FAERS Safety Report 6195045-8 (Version None)
Quarter: 2009Q2

REPORT INFORMATION
  Report Type: 
  Country: None (occurrence: None)
  Receive Date: 20090519
  Receipt Date: 20090504
  Transmission Date: 20091009
  Serious: Yes (Death, Other)
  Sender: FDA-Public Use
  Company Number: AU-GENENTECH-282863

PATIENT
  Sex: Female

DRUGS (5)
  1. HERCEPTIN [Suspect]
     Indication: BREAST CANCER METASTATIC
     Dosage: 4 MG/KG, SINGLE
     Route: 042
  2. HERCEPTIN [Suspect]
     Dosage: 2 MG/KG, 1/WEEK
     Route: 042
  3. CAPECITABINE [Suspect]
     Indication: BREAST CANCER METASTATIC
     Dosage: UNK MG/M2, BID
     Route: 048
  4. VINORELBINE [Suspect]
     Indication: BREAST CANCER METASTATIC
     Dosage: 60 MG/M2, SINGLE
     Route: 048
  5. VINORELBINE [Suspect]
     Dosage: 80 MG/M2, UNK
     Route: 048

REACTIONS (13)
  - ASTHENIA [None]
  - BREAST CANCER METASTATIC [None]
  - DIARRHOEA [None]
  - EJECTION FRACTION DECREASED [None]
  - FATIGUE [None]
  - FEBRILE NEUTROPENIA [None]
  - INFECTION [None]
  - NAUSEA [None]
  - NEUTROPENIA [None]
  - NEUTROPENIC INFECTION [None]
  - PALMAR-PLANTAR ERYTHRODYSAESTHESIA SYNDROME [None]
  - STOMATITIS [None]
  - VOMITING [None]
